FAERS Safety Report 9845378 (Version 3)
Quarter: 2014Q1

REPORT INFORMATION
  Report Type: Spontaneous
  Country: US (occurrence: None)
  Receive Date: 20140122
  Receipt Date: 20140129
  Transmission Date: 20141002
  Serious: Yes (Other)
  Sender: FDA-Public Use
  Company Number: 2014-US-000250

PATIENT
  Sex: Female

DRUGS (14)
  1. XYREM [Suspect]
     Indication: NARCOLEPSY
     Route: 048
     Dates: start: 201312, end: 201401
  2. XYREM [Suspect]
     Indication: NARCOLEPSY
     Route: 048
     Dates: start: 201312, end: 201401
  3. LYSTEDA (TRANEXAMIC ACID) [Concomitant]
  4. OMEPRAZOLE (OMEPRAZOLE) [Concomitant]
  5. LEXAPRO (ESCITALOPRAM OXALATE) [Concomitant]
  6. LEVOTHYROXINE (LEVOTHYROXINE) [Concomitant]
  7. METFORMIN (METFORMIN HYDROCHLORIDE) [Concomitant]
  8. METHYPHENIDATE (METHYLPHENIDATE) [Concomitant]
  9. SAVELLA (MILNACIPRAN HYDROCHLORIDE) [Concomitant]
  10. LYRICA (PREGABALIN) [Concomitant]
  11. REGLAN (METOCLOPRAMIDE) [Concomitant]
  12. PRAMIPEXOLE (PRAMIPEXOLE DIHYDROCHLORIDE) [Concomitant]
  13. ALREX (LOTEPREDNOL ETABONATE) [Concomitant]
  14. TRIAMCINOLONE (TRIAMCINOLONE ACETONIDE) [Concomitant]

REACTIONS (15)
  - Pharyngeal oedema [None]
  - Swollen tongue [None]
  - Swelling face [None]
  - Eye swelling [None]
  - Dyspnoea [None]
  - Surgery [None]
  - Systemic lupus erythematosus [None]
  - Pharyngeal oedema [None]
  - Dyspnoea [None]
  - Eyelid oedema [None]
  - Poor quality sleep [None]
  - Vomiting [None]
  - Fatigue [None]
  - Gallbladder disorder [None]
  - Condition aggravated [None]
